FAERS Safety Report 9115162 (Version 1)
Quarter: 2013Q1

REPORT INFORMATION
  Report Type: Spontaneous
  Country: FR (occurrence: FR)
  Receive Date: 20130225
  Receipt Date: 20130225
  Transmission Date: 20140127
  Serious: Yes (Other)
  Sender: FDA-Public Use
  Company Number: FR-JNJFOC-20130208777

PATIENT
  Age: 70 None
  Sex: Female

DRUGS (4)
  1. ALOSTIL 5% [Suspect]
     Route: 061
  2. ALOSTIL 5% [Suspect]
     Indication: ALOPECIA
     Route: 061
     Dates: start: 201211, end: 20130116
  3. COSOPT [Concomitant]
     Indication: GLAUCOMA
     Route: 047
  4. XALATAN [Concomitant]
     Indication: GLAUCOMA
     Route: 047

REACTIONS (3)
  - Diplopia [Not Recovered/Not Resolved]
  - Headache [Not Recovered/Not Resolved]
  - Wrong drug administered [Unknown]
